FAERS Safety Report 6649845-8 (Version None)
Quarter: 2010Q1

REPORT INFORMATION
  Report Type: 
  Country: None (occurrence: None)
  Receive Date: 20100325
  Receipt Date: 20100317
  Transmission Date: 20100710
  Serious: Yes (Other)
  Sender: FDA-Public Use
  Company Number: US-BIOGENIDEC-2010BI006074

PATIENT
  Age: 47 Year
  Sex: Female
  Weight: 47 kg

DRUGS (2)
  1. TYSABRI [Suspect]
     Indication: MULTIPLE SCLEROSIS
     Route: 042
     Dates: start: 20070101
  2. EFFEXOR [Concomitant]
     Indication: DEPRESSION
     Dates: start: 20100201

REACTIONS (8)
  - CONVULSION [None]
  - CRYING [None]
  - EYE DISORDER [None]
  - FATIGUE [None]
  - FEELING HOT [None]
  - GENERAL SYMPTOM [None]
  - HYPERSOMNIA [None]
  - STRESS [None]
